FAERS Safety Report 17971844 (Version 3)
Quarter: 2021Q2

REPORT INFORMATION
  Report Type: Report from Study
  Country: GR (occurrence: GR)
  Receive Date: 20200701
  Receipt Date: 20210616
  Transmission Date: 20210717
  Serious: Yes (Hospitalization, Other)
  Sender: FDA-Public Use
  Company Number: GR-BRISTOL-MYERS SQUIBB COMPANY-BMS-2020-039566

PATIENT
  Age: 60 Year
  Sex: Female
  Weight: 74 kg

DRUGS (10)
  1. MERONEM [Concomitant]
     Active Substance: MEROPENEM
     Indication: PRODUCT USED FOR UNKNOWN INDICATION
     Dosage: 6 GRAM
     Route: 042
     Dates: start: 20200425, end: 20200427
  2. NIVOLUMAB [Suspect]
     Active Substance: NIVOLUMAB
     Indication: MALIGNANT MELANOMA
     Dosage: 360 MILLIGRAM
     Route: 042
     Dates: start: 20200403, end: 20200424
  3. VONCON [Concomitant]
     Active Substance: VANCOMYCIN HYDROCHLORIDE
     Indication: PRODUCT USED FOR UNKNOWN INDICATION
     Dosage: 2 GRAM
     Route: 042
     Dates: start: 20200425, end: 20200426
  4. BMS?986321?01 [Suspect]
     Active Substance: INVESTIGATIONAL PRODUCT
     Indication: MALIGNANT MELANOMA
     Dosage: 0.44 MILLIGRAM
     Route: 042
     Dates: start: 20200403, end: 20200424
  5. TYGACIL [Concomitant]
     Active Substance: TIGECYCLINE
     Indication: PYREXIA
     Dosage: 100 MILLIGRAM
     Route: 042
     Dates: start: 20200426, end: 20200427
  6. CIPROXIN [CIPROFLOXACIN] [Concomitant]
     Active Substance: CIPROFLOXACIN
     Indication: PRODUCT USED FOR UNKNOWN INDICATION
     Dosage: 1000 MILLIGRAM
     Route: 048
     Dates: start: 20200428, end: 20200514
  7. FUNGUSTATIN [Concomitant]
     Active Substance: FLUCONAZOLE
     Indication: PRODUCT USED FOR UNKNOWN INDICATION
     Dosage: 200 MILLIGRAM
     Route: 048
     Dates: start: 20200428, end: 20200514
  8. T4 [Concomitant]
     Active Substance: LEVOTHYROXINE
     Indication: PRODUCT USED FOR UNKNOWN INDICATION
     Dosage: 112 MICROGRAM
     Route: 048
     Dates: start: 2000
  9. CLEXANE [Concomitant]
     Active Substance: ENOXAPARIN SODIUM
     Indication: PRODUCT USED FOR UNKNOWN INDICATION
     Dosage: 1 DOSAGE FORM
     Route: 058
     Dates: start: 20200425, end: 20200514
  10. XOZAL [Concomitant]
     Active Substance: LEVOCETIRIZINE
     Indication: RASH MACULO-PAPULAR
     Dosage: 5 MILLIGRAM
     Route: 048
     Dates: start: 20200411, end: 20200424

REACTIONS (2)
  - Eosinophilia [Recovered/Resolved]
  - Hypotension [Recovered/Resolved]

NARRATIVE: CASE EVENT DATE: 20200425
